FAERS Safety Report 5151081-1 (Version None)
Quarter: 2006Q4

REPORT INFORMATION
  Report Type: 
  Country: None (occurrence: None)
  Receive Date: 20061115
  Receipt Date: 20061106
  Transmission Date: 20070319
  Serious: Yes (Hospitalization)
  Sender: FDA-Public Use
  Company Number: MX-ABBOTT-06P-107-0349543-00

PATIENT
  Sex: Male
  Weight: 57.3 kg

DRUGS (5)
  1. KALETRA [Suspect]
     Indication: HIV TEST POSITIVE
     Route: 048
     Dates: start: 20060322
  2. KALETRA [Suspect]
     Route: 048
  3. FLUCONAZOLE [Concomitant]
     Indication: PROPHYLAXIS
     Route: 048
     Dates: start: 20051221
  4. TRIMETOPRIME [Concomitant]
     Indication: PROPHYLAXIS
     Dosage: 800/400 MG
     Route: 048
     Dates: start: 20051221
  5. CLINDAMYCIN [Concomitant]
     Indication: TOXOPLASMOSIS
     Route: 048
     Dates: start: 20060718

REACTIONS (11)
  - ASTHENIA [None]
  - EYE PAIN [None]
  - HYPERHIDROSIS [None]
  - HYPOTENSION [None]
  - INCOHERENT [None]
  - LEUKOPENIA [None]
  - LOSS OF CONSCIOUSNESS [None]
  - LYMPHOPENIA [None]
  - NERVOUS SYSTEM DISORDER [None]
  - TACHYCARDIA [None]
  - TOXOPLASMOSIS [None]
